FAERS Safety Report 6996638-8 (Version None)
Quarter: 2010Q3

REPORT INFORMATION
  Report Type: 
  Country: None (occurrence: None)
  Receive Date: 20100918
  Receipt Date: 20090416
  Transmission Date: 20110219
  Serious: No
  Sender: FDA-Public Use
  Company Number: US-WYE-H09195209

PATIENT
  Sex: Male
  Weight: 86.26 kg

DRUGS (2)
  1. EFFEXOR XR [Suspect]
     Indication: DEPRESSION
     Route: 048
     Dates: start: 20050101
  2. LAMICTAL [Concomitant]
     Indication: DEPRESSION

REACTIONS (2)
  - CRYING [None]
  - DRUG INEFFECTIVE [None]
